FAERS Safety Report 7829974-3 (Version None)
Quarter: 2011Q4

REPORT INFORMATION
  Report Type: 
  Country: None (occurrence: None)
  Receive Date: 20111021
  Receipt Date: 20101001
  Transmission Date: 20120403
  Serious: No
  Sender: FDA-Public Use
  Company Number: US-BAYER-201036433NA

PATIENT
  Sex: Female
  Weight: 54.422 kg

DRUGS (3)
  1. ULTRAVIST 150 [Suspect]
     Indication: UROGRAM
     Dosage: SIZE OF VIAL/BOTTLE 500; RATE 2ML
     Route: 042
     Dates: start: 20100930
  2. ULTRAVIST 150 [Suspect]
     Indication: COMPUTERISED TOMOGRAM
  3. FLONASE [Concomitant]

REACTIONS (1)
  - ERYTHEMA [None]
